FAERS Safety Report 5557359-1 (Version None)
Quarter: 2007Q4

REPORT INFORMATION
  Report Type: 
  Country: None (occurrence: None)
  Receive Date: 20071211
  Receipt Date: 20071128
  Transmission Date: 20080405
  Serious: Yes (Other)
  Sender: FDA-Public Use
  Company Number: CHNY2007JP03969

PATIENT
  Sex: Female

DRUGS (3)
  1. PURSENNID (NCH) (SENNA GLYCOSIDES (CA SALTS OF PURIFIED SENNA EXTRACT) [Suspect]
     Dosage: ORAL
     Route: 048
  2. PANALDINE (TICLOPIDINE HYDROCHLORIDE) [Concomitant]
  3. ASPIRIN [Concomitant]

REACTIONS (1)
  - HAEMATOCHEZIA [None]
